FAERS Safety Report 4446110-4 (Version None)
Quarter: 2004Q3

REPORT INFORMATION
  Report Type: 
  Country: None (occurrence: None)
  Receive Date: 20040907
  Receipt Date: 20040608
  Transmission Date: 20050211
  Serious: Yes (Other)
  Sender: FDA-Public Use
  Company Number: US-ROCHE-370639

PATIENT
  Age: 45 Year
  Sex: Female
  Weight: 81.2 kg

DRUGS (8)
  1. FUZEON [Suspect]
     Indication: DRUG USE FOR UNKNOWN INDICATION
     Route: 058
  2. ABACAVIR [Suspect]
     Route: 065
  3. EFAVIRENZ [Suspect]
     Route: 065
  4. NELFINAVIR [Suspect]
     Route: 065
  5. DIDANOSINE [Suspect]
     Route: 065
  6. STAVUDINE [Suspect]
     Route: 065
  7. VIREAD [Concomitant]
     Indication: HIV INFECTION
     Route: 048
     Dates: start: 20040526
  8. EMTRIVA [Concomitant]
     Indication: HIV INFECTION
     Route: 048
     Dates: start: 20040526

REACTIONS (6)
  - HEPATIC STEATOSIS [None]
  - HYPERSENSITIVITY [None]
  - HYPOTENSION [None]
  - LACTIC ACIDOSIS [None]
  - PYREXIA [None]
  - TRANSAMINASES INCREASED [None]
